FAERS Safety Report 11148560 (Version 1)
Quarter: 2015Q2

REPORT INFORMATION
  Report Type: Spontaneous
  Country: US (occurrence: US)
  Receive Date: 20150529
  Receipt Date: 20150529
  Transmission Date: 20150821
  Serious: No
  Sender: FDA-Public Use
  Company Number: US-PFIZER INC-2015175939

PATIENT
  Age: 50 Year
  Sex: Male
  Weight: 89 kg

DRUGS (18)
  1. LEVOTHYROXINE SODIUM. [Concomitant]
     Active Substance: LEVOTHYROXINE SODIUM
     Dosage: 75 ?G, DAILY
     Route: 048
  2. VITAMIN D3 [Concomitant]
     Active Substance: CHOLECALCIFEROL
     Dosage: 1000, UNK, DAILY
     Route: 048
  3. PENTOXIFYLLINE ER [Concomitant]
     Dosage: 400 MG, AS NEEDED (ONE TABLET EVERY 8 HOURS)
  4. ARIMIDEX [Concomitant]
     Active Substance: ANASTROZOLE
     Dosage: 1 MG, ALTERNATE DAY (TAKE ONE TABLET MONDAY, WEDNESDAY, FRIDAY)
     Route: 048
  5. VITAMIN B [Concomitant]
     Active Substance: VITAMIN B
  6. METFORMIN HCL [Suspect]
     Active Substance: METFORMIN HYDROCHLORIDE
     Dosage: 500 MG, 2X/DAY
     Route: 048
  7. TESTOPEL [Concomitant]
     Active Substance: TESTOSTERONE
     Dosage: 75 MG, UNK
  8. ROBAXIN [Concomitant]
     Active Substance: METHOCARBAMOL
     Indication: MUSCLE SPASMS
     Dosage: 500 MG, AS NEEDED (TAKE ONE TABLET BY MOUTH EVERY 8 HOURS AS NEEDED)
     Route: 048
  9. MELOXICAM. [Concomitant]
     Active Substance: MELOXICAM
     Indication: BACK PAIN
     Dosage: 15 MG, DAILY
     Route: 048
  10. ENALAPRIL [Concomitant]
     Active Substance: ENALAPRIL
  11. PRISTIQ EXTENDED RELEASE [Suspect]
     Active Substance: DESVENLAFAXINE SUCCINATE
     Dosage: 100 MG, 1X/DAY
     Route: 048
  12. ASPIRIN. [Concomitant]
     Active Substance: ASPIRIN
     Dosage: 81 MG, DAILY
     Route: 048
  13. ALPRAZOLAM. [Concomitant]
     Active Substance: ALPRAZOLAM
     Dosage: 0.5 MG, AS NEEDED (2 TO 3 TIMES DAILY PRN)
  14. VASOTEC [Concomitant]
     Active Substance: ENALAPRIL MALEATE
     Dosage: 20 MG, DAILY
     Route: 048
  15. LAMICTAL [Concomitant]
     Active Substance: LAMOTRIGINE
     Dosage: 200 MG, 2X/DAY
     Route: 048
  16. TRAMADOL HCL [Concomitant]
     Active Substance: TRAMADOL HYDROCHLORIDE
     Indication: PAIN
     Dosage: 1-2 BY MOUTH EVERY 4 HRS AS NEEDED
  17. PRAVASTATIN SODIUM. [Concomitant]
     Active Substance: PRAVASTATIN SODIUM
     Dosage: 40 MG, DAILY
     Route: 048
  18. OMEPRAZOLE. [Concomitant]
     Active Substance: OMEPRAZOLE
     Dosage: 40 MG, 1X/DAY
     Route: 048

REACTIONS (3)
  - Penis disorder [Unknown]
  - Erectile dysfunction [Unknown]
  - Condition aggravated [Unknown]
